FAERS Safety Report 8594476-6 (Version None)
Quarter: 2012Q3

REPORT INFORMATION
  Report Type: 
  Country: None (occurrence: None)
  Receive Date: 20120801
  Receipt Date: 20120717
  Transmission Date: 20120928
  Serious: Yes (Hospitalization)
  Sender: FDA-Public Use
  Company Number: FK201202085

PATIENT
  Age: 63 Year
  Sex: Male

DRUGS (2)
  1. OXALIPLATIN [Suspect]
     Indication: OESOPHAGEAL CARCINOMA
     Dosage: 85 MG/M2
  2. CAPECITABINE [Concomitant]

REACTIONS (6)
  - LEUKOCYTOSIS [None]
  - FATIGUE [None]
  - ASTHENIA [None]
  - THROMBOCYTOPENIA [None]
  - BONE PAIN [None]
  - ACUTE MYELOID LEUKAEMIA [None]
